FAERS Safety Report 16029135 (Version 1)
Quarter: 2019Q1

REPORT INFORMATION
  Report Type: Spontaneous
  Country: US (occurrence: US)
  Receive Date: 20190304
  Receipt Date: 20190304
  Transmission Date: 20190418
  Serious: No
  Sender: FDA-Public Use
  Company Number: US-009507513-1903USA000092

PATIENT
  Sex: Female

DRUGS (16)
  1. GANIRELIX ACETATE INJECTION [Suspect]
     Active Substance: GANIRELIX ACETATE
     Indication: INFERTILITY
     Dosage: 250 MICROGRAM, QD
     Route: 058
     Dates: start: 20160821
  2. CETROTIDE [Concomitant]
     Active Substance: CETRORELIX ACETATE
  3. MENOPUR [Concomitant]
     Active Substance: FOLLITROPIN\LUTEINIZING HORMONE
  4. SYEDA [Concomitant]
     Active Substance: DROSPIRENONE\ETHINYL ESTRADIOL
  5. TOBRAMYCIN. [Concomitant]
     Active Substance: TOBRAMYCIN
  6. DESOGESTREL (+) ETHINYL ESTRADIOL [Concomitant]
     Active Substance: DESOGESTREL\ETHINYL ESTRADIOL
  7. METRONIDAZOLE. [Concomitant]
     Active Substance: METRONIDAZOLE
  8. SESAME OIL [Suspect]
     Active Substance: SESAME OIL
  9. ENDOMETRIN [Concomitant]
     Active Substance: PROGESTERONE
  10. NOVAREL [Concomitant]
     Active Substance: CHORIOGONADOTROPIN ALFA
  11. ESTRADIOL. [Concomitant]
     Active Substance: ESTRADIOL
  12. METHYLPRED ORAL [Concomitant]
  13. DIAZEPAM. [Concomitant]
     Active Substance: DIAZEPAM
  14. PROGESTERONE. [Suspect]
     Active Substance: PROGESTERONE
  15. LEUPROLIDE [Concomitant]
     Active Substance: LEUPROLIDE
  16. DOXYCYCLINE. [Concomitant]
     Active Substance: DOXYCYCLINE

REACTIONS (1)
  - Hypersensitivity [Not Recovered/Not Resolved]
